FAERS Safety Report 4302712-7 (Version None)
Quarter: 2004Q1

REPORT INFORMATION
  Report Type: 
  Country: None (occurrence: None)
  Receive Date: 20040224
  Receipt Date: 20031203
  Transmission Date: 20041129
  Serious: Yes (Hospitalization, Other)
  Sender: FDA-Public Use
  Company Number: PHNU2003DE04286

PATIENT
  Age: 19 Year
  Sex: Male

DRUGS (2)
  1. RITALIN-SR [Suspect]
     Indication: ATTENTION DEFICIT/HYPERACTIVITY DISORDER
     Dosage: 20 MG, BID
     Route: 048
     Dates: start: 20000101
  2. SINQUAN                                 /DEN/ [Concomitant]
     Route: 048

REACTIONS (2)
  - DRUG DEPENDENCE [None]
  - PERSONALITY DISORDER [None]
